FAERS Safety Report 5531390-4 (Version None)
Quarter: 2007Q4

REPORT INFORMATION
  Report Type: 
  Country: None (occurrence: None)
  Receive Date: 20071203
  Receipt Date: 20071128
  Transmission Date: 20080405
  Serious: Yes (Hospitalization)
  Sender: FDA-Public Use
  Company Number: US-RB-006888-07

PATIENT
  Sex: Female
  Weight: 79.2 kg

DRUGS (6)
  1. SUBUTEX [Suspect]
     Route: 060
     Dates: start: 20070601, end: 20071030
  2. SUBUTEX [Suspect]
     Route: 060
     Dates: start: 20071110
  3. SUBOXONE [Suspect]
     Route: 060
     Dates: start: 20070615, end: 20070615
  4. AMBIEN [Concomitant]
     Indication: DRUG USE FOR UNKNOWN INDICATION
     Route: 048
     Dates: start: 20070428
  5. XANAX [Concomitant]
     Indication: ANXIETY
     Dosage: 2-4 MG PER DAY PRN
     Route: 048
  6. ZOFRAN [Concomitant]
     Indication: DRUG USE FOR UNKNOWN INDICATION
     Dosage: DOSE UNKNOWN
     Route: 048
     Dates: start: 20070301

REACTIONS (5)
  - ANAEMIA [None]
  - DRUG EXPOSURE DURING PREGNANCY [None]
  - NO ADVERSE REACTION [None]
  - PNEUMONIA [None]
  - RASH [None]
